FAERS Safety Report 16383814 (Version 1)
Quarter: 2019Q2

REPORT INFORMATION
  Report Type: Spontaneous
  Country: ES (occurrence: ES)
  Receive Date: 20190603
  Receipt Date: 20190603
  Transmission Date: 20190711
  Serious: Yes (Other)
  Sender: FDA-Public Use
  Company Number: ES-MYLANLABS-2019M1050971

PATIENT
  Age: 79 Year
  Sex: Female

DRUGS (4)
  1. LEVOGASTROL [Suspect]
     Active Substance: LEVOSULPIRIDE
     Indication: DYSPEPSIA
     Dosage: 25 MILLIGRAM, BID
     Route: 048
     Dates: start: 20170606, end: 20181017
  2. REPAGLINIDA ACCORD [Suspect]
     Active Substance: REPAGLINIDE
     Indication: DIABETES MELLITUS
     Dosage: 2 MILLIGRAM, BID
     Route: 048
     Dates: start: 20180315
  3. EDISTRIDE [Suspect]
     Active Substance: DAPAGLIFLOZIN
     Indication: DIABETES MELLITUS
     Dosage: 10 MILLIGRAM, QD
     Route: 048
     Dates: start: 20170523, end: 20181017
  4. PANTOPRAZOLE [Suspect]
     Active Substance: PANTOPRAZOLE
     Indication: PROPHYLAXIS AGAINST GASTROINTESTINAL ULCER
     Dosage: 40 MILLIGRAM, BID
     Route: 048
     Dates: start: 20170426, end: 20181017

REACTIONS (3)
  - Memory impairment [Unknown]
  - Decreased appetite [Unknown]
  - Somnolence [Unknown]

NARRATIVE: CASE EVENT DATE: 201705
